FAERS Safety Report 13923184 (Version 1)
Quarter: 2017Q3

REPORT INFORMATION
  Report Type: Spontaneous
  Country: US (occurrence: None)
  Receive Date: 20170830
  Receipt Date: 20170830
  Transmission Date: 20171127
  Serious: Yes (Hospitalization)
  Sender: FDA-Public Use
  Company Number: None

PATIENT
  Age: 55 Year
  Sex: Male

DRUGS (2)
  1. LITHIUM. [Suspect]
     Active Substance: LITHIUM
     Indication: BIPOLAR I DISORDER
     Route: 048
     Dates: start: 19991005, end: 20170726
  2. CARBAMAZEPINE. [Suspect]
     Active Substance: CARBAMAZEPINE
     Indication: BIPOLAR I DISORDER
     Route: 048
     Dates: start: 19991005, end: 20170726

REACTIONS (4)
  - Perineal abscess [None]
  - Respiratory failure [None]
  - Acute kidney injury [None]
  - Nephrogenic diabetes insipidus [None]

NARRATIVE: CASE EVENT DATE: 20170726
